FAERS Safety Report 12285564 (Version 1)
Quarter: 2016Q2

REPORT INFORMATION
  Report Type: Spontaneous
  Country: US (occurrence: US)
  Receive Date: 20160420
  Receipt Date: 20160420
  Transmission Date: 20160815
  Serious: No
  Sender: FDA-Public Use
  Company Number: CHPA2016US003224

PATIENT
  Age: 78 Year
  Sex: Male

DRUGS (1)
  1. VOLTAREN [Suspect]
     Active Substance: DICLOFENAC SODIUM
     Indication: ARTHRITIS
     Dosage: LITTLE BIT, QD, ONCE A MONTH
     Route: 061
     Dates: start: 2015, end: 201603

REACTIONS (6)
  - Product use issue [Unknown]
  - Drug administered at inappropriate site [Unknown]
  - Wrong technique in product usage process [Unknown]
  - Drug dispensed to wrong patient [Unknown]
  - Expired product administered [Unknown]
  - Inappropriate schedule of drug administration [Unknown]
